FAERS Safety Report 7002597-4 (Version None)
Quarter: 2010Q3

REPORT INFORMATION
  Report Type: 
  Country: None (occurrence: None)
  Receive Date: 20100920
  Receipt Date: 20100910
  Transmission Date: 20110219
  Serious: Yes (Other)
  Sender: FDA-Public Use
  Company Number: PHHY2010NL60062

PATIENT
  Sex: Male

DRUGS (1)
  1. ZOMETA [Suspect]
     Dosage: 4MG/5ML
     Route: 042
     Dates: end: 20100805

REACTIONS (4)
  - ASTHENIA [None]
  - DEPRESSED MOOD [None]
  - FEAR [None]
  - QUALITY OF LIFE DECREASED [None]
